FAERS Safety Report 15241774 (Version 1)
Quarter: 2018Q3

REPORT INFORMATION
  Report Type: Spontaneous
  Country: BR (occurrence: BR)
  Receive Date: 20180805
  Receipt Date: 20180805
  Transmission Date: 20181010
  Serious: Yes (Hospitalization, Other)
  Sender: FDA-Public Use
  Company Number: BR-ALEXION-A201809767

PATIENT
  Age: 37 Year
  Sex: Female

DRUGS (2)
  1. SOLIRIS [Suspect]
     Active Substance: ECULIZUMAB
     Indication: PAROXYSMAL NOCTURNAL HAEMOGLOBINURIA
     Dosage: 600 MG, QW
     Route: 042
     Dates: start: 20150908, end: 20150929
  2. SOLIRIS [Suspect]
     Active Substance: ECULIZUMAB
     Dosage: 900 MG, Q2W
     Route: 042
     Dates: start: 20151006

REACTIONS (18)
  - Headache [Unknown]
  - Bedridden [Unknown]
  - Dysphagia [Unknown]
  - Pain in extremity [Unknown]
  - Nausea [Not Recovered/Not Resolved]
  - Decreased appetite [Not Recovered/Not Resolved]
  - Malaise [Unknown]
  - Migraine [Not Recovered/Not Resolved]
  - Oropharyngeal pain [Unknown]
  - Gait disturbance [Unknown]
  - Abdominal pain upper [Not Recovered/Not Resolved]
  - Haemoglobin decreased [Unknown]
  - Feeling cold [Recovered/Resolved]
  - Blood pressure decreased [Unknown]
  - Fatigue [Unknown]
  - Blood urine present [Not Recovered/Not Resolved]
  - Asthenia [Unknown]
  - Tremor [Recovered/Resolved]

NARRATIVE: CASE EVENT DATE: 201807
